FAERS Safety Report 7978222-2 (Version None)
Quarter: 2011Q4

REPORT INFORMATION
  Report Type: 
  Country: None (occurrence: None)
  Receive Date: 20111208
  Receipt Date: 20111201
  Transmission Date: 20120403
  Serious: Yes (Hospitalization)
  Sender: FDA-Public Use
  Company Number: 2011SP056347

PATIENT
  Age: 27 Year
  Sex: Female

DRUGS (3)
  1. PUREGON (FOLLITROPIN BETA /01348901/) [Suspect]
     Indication: OVULATION INDUCTION
     Dosage: 900 IU;QD;SC
     Route: 058
     Dates: start: 20110906, end: 20110911
  2. GANIRELIX ACETATE INJECTION [Suspect]
     Indication: OVULATION INDUCTION
     Dosage: 1 DF;QD;SC
     Route: 058
     Dates: start: 20110908, end: 20110911
  3. CHORIONIC GONADOTROPIN [Concomitant]

REACTIONS (4)
  - VOMITING [None]
  - OVARIAN HYPERSTIMULATION SYNDROME [None]
  - OVARIAN TORSION [None]
  - EFFUSION [None]
